FAERS Safety Report 7471423-1 (Version None)
Quarter: 2011Q2

REPORT INFORMATION
  Report Type: 
  Country: None (occurrence: None)
  Receive Date: 20110511
  Receipt Date: 20110503
  Transmission Date: 20111010
  Serious: Yes (Hospitalization, Other)
  Sender: FDA-Public Use
  Company Number: IE-BIOGENIDEC-2011BI008218

PATIENT
  Age: 37 Year
  Sex: Female

DRUGS (2)
  1. TYSABRI [Suspect]
     Indication: PRODUCT USED FOR UNKNOWN INDICATION
     Route: 042
     Dates: start: 20070102, end: 20110208
  2. TOLTERODINE TARTRATE [Concomitant]

REACTIONS (2)
  - BREAST CANCER IN SITU [None]
  - METASTATIC NEOPLASM [None]
